FAERS Safety Report 21757718 (Version 1)
Quarter: 2022Q4

REPORT INFORMATION
  Report Type: Spontaneous
  Country: US (occurrence: None)
  Receive Date: 20221221
  Receipt Date: 20221221
  Transmission Date: 20230113
  Serious: No
  Sender: FDA-Public Use
  Company Number: US-ROCHE-2948090

PATIENT
  Age: 58 Year
  Sex: Female
  Weight: 69.4 kg

DRUGS (9)
  1. ACTIVASE [Suspect]
     Active Substance: ALTEPLASE
     Indication: Cerebrovascular accident
     Dosage: GIVEN AS A BOLUS ONCE
     Route: 040
     Dates: start: 20211027, end: 20211027
  2. ACTIVASE [Suspect]
     Active Substance: ALTEPLASE
     Route: 042
     Dates: start: 20211027, end: 20211027
  3. XANAX [Concomitant]
     Active Substance: ALPRAZOLAM
     Indication: Product used for unknown indication
     Route: 048
  4. ARMOUR THYROID [Concomitant]
     Active Substance: THYROID, PORCINE
     Indication: Hypothyroidism
     Route: 048
  5. CYMBALTA [Concomitant]
     Active Substance: DULOXETINE HYDROCHLORIDE
     Indication: Product used for unknown indication
     Route: 048
  6. LOPID [Concomitant]
     Active Substance: GEMFIBROZIL
     Indication: Product used for unknown indication
     Route: 048
  7. COZAAR [Concomitant]
     Active Substance: LOSARTAN POTASSIUM
     Indication: Product used for unknown indication
     Route: 048
  8. FISH OIL [Concomitant]
     Active Substance: FISH OIL
     Indication: Product used for unknown indication
     Dosage: TWO 1000 MG CAPSULES PER DOSE
     Route: 048
  9. LABETALOL [Concomitant]
     Active Substance: LABETALOL\LABETALOL HYDROCHLORIDE
     Indication: Hypertension
     Dosage: EVERY 10 MINUTES AS NEEDED FOR SYSTOLIC BLOOD PRESSURE }180 OR?DIASTOLIC BLOOD PRESSURE }105
     Route: 042
     Dates: start: 20211027

REACTIONS (3)
  - Inappropriate schedule of product administration [Unknown]
  - Intercepted product selection error [Unknown]
  - No adverse event [Unknown]

NARRATIVE: CASE EVENT DATE: 20211027
